FAERS Safety Report 9888258 (Version 3)
Quarter: 2014Q1

REPORT INFORMATION
  Report Type: Spontaneous
  Country: JP (occurrence: JP)
  Receive Date: 20140211
  Receipt Date: 20140311
  Transmission Date: 20141002
  Serious: No
  Sender: FDA-Public Use
  Company Number: JP-SA-2014SA012683

PATIENT
  Age: 77 Year
  Sex: Female
  Weight: 52 kg

DRUGS (9)
  1. MYSLEE [Suspect]
     Indication: INSOMNIA
     Route: 048
     Dates: start: 20110716, end: 20110718
  2. LIPITOR [Concomitant]
     Indication: HYPERCHOLESTEROLAEMIA
     Dates: start: 19971110, end: 20130313
  3. NORVASC [Concomitant]
     Indication: HYPERTENSION
     Dates: start: 19971110
  4. IRBETAN [Concomitant]
     Indication: HYPERTENSION
     Dates: start: 20100206
  5. SELOKEN [Concomitant]
     Indication: HYPERTENSION
     Dates: start: 19971110
  6. SOLANAX [Concomitant]
     Indication: INSOMNIA
     Dates: start: 19971110
  7. CARDENALIN [Concomitant]
     Indication: HYPERTENSION
     Dates: start: 19971110
  8. FLUITRAN [Concomitant]
  9. HALCION [Concomitant]
     Indication: INSOMNIA
     Dates: start: 19971110

REACTIONS (1)
  - Somnambulism [Recovered/Resolved]
